FAERS Safety Report 18944258 (Version 1)
Quarter: 2021Q1

REPORT INFORMATION
  Report Type: Spontaneous
  Country: CI (occurrence: CI)
  Receive Date: 20210226
  Receipt Date: 20210226
  Transmission Date: 20210420
  Serious: Yes (Death, Other)
  Sender: FDA-Public Use
  Company Number: NVSC2021CI041808

PATIENT
  Sex: Female

DRUGS (1)
  1. GLIVEC [Suspect]
     Active Substance: IMATINIB MESYLATE
     Indication: CHRONIC MYELOID LEUKAEMIA
     Dosage: 100 MG (100MGX6)
     Route: 065

REACTIONS (5)
  - Anaemia [Fatal]
  - Chronic myeloid leukaemia transformation [Fatal]
  - Platelet count decreased [Fatal]
  - Acute leukaemia [Fatal]
  - White blood cell count increased [Fatal]
